FAERS Safety Report 21785192 (Version 1)
Quarter: 2022Q4

REPORT INFORMATION
  Report Type: Spontaneous
  Country: US (occurrence: None)
  Receive Date: 20221227
  Receipt Date: 20221227
  Transmission Date: 20230112
  Serious: Yes (Disabling)
  Sender: FDA-Public Use
  Company Number: None

PATIENT
  Age: 35 Year
  Sex: Male
  Weight: 74.25 kg

DRUGS (3)
  1. DOXYCYCLINE [Suspect]
     Active Substance: DOXYCYCLINE
     Indication: Lyme disease
  2. Plavix 75mg once daily [Concomitant]
  3. Men^s multi vitamin [Concomitant]

REACTIONS (2)
  - Tendon pain [None]
  - Tendon pain [None]

NARRATIVE: CASE EVENT DATE: 20221126
